FAERS Safety Report 7806383-4 (Version None)
Quarter: 2011Q4

REPORT INFORMATION
  Report Type: 
  Country: None (occurrence: None)
  Receive Date: 20111011
  Receipt Date: 20111003
  Transmission Date: 20120403
  Serious: Yes (Other)
  Sender: FDA-Public Use
  Company Number: JP-JNJFOC-20090708505

PATIENT
  Sex: Female
  Weight: 50 kg

DRUGS (21)
  1. DOXORUBICIN HCL [Suspect]
     Route: 042
     Dates: start: 20100614, end: 20100614
  2. DOXORUBICIN HCL [Suspect]
     Dosage: CYCLE 6
     Route: 042
     Dates: start: 20091020, end: 20091020
  3. DOXORUBICIN HCL [Suspect]
     Route: 042
     Dates: start: 20100112, end: 20100112
  4. DOXORUBICIN HCL [Suspect]
     Route: 042
     Dates: start: 20100713, end: 20100713
  5. DOXORUBICIN HCL [Suspect]
     Route: 042
     Dates: start: 20100323, end: 20100323
  6. DOXORUBICIN HCL [Suspect]
     Dosage: CYCLE 2
     Route: 042
     Dates: start: 20090609, end: 20090609
  7. PYDOXAL [Concomitant]
     Indication: PROPHYLAXIS
     Route: 048
     Dates: start: 20090511
  8. ANTEBATE [Concomitant]
     Indication: PROPHYLAXIS
     Route: 061
     Dates: start: 20090622, end: 20090901
  9. DOXORUBICIN HCL [Suspect]
     Indication: OVARIAN CANCER RECURRENT
     Route: 042
     Dates: start: 20100420, end: 20100420
  10. DOXORUBICIN HCL [Suspect]
     Dosage: CYCLE 3
     Route: 042
     Dates: start: 20090707, end: 20090707
  11. DOXORUBICIN HCL [Suspect]
     Route: 042
     Dates: start: 20100208, end: 20100208
  12. DOXORUBICIN HCL [Suspect]
     Dosage: CYCLE 4
     Route: 042
     Dates: start: 20090817, end: 20090817
  13. DOXORUBICIN HCL [Suspect]
     Route: 042
     Dates: start: 20091119, end: 20091119
  14. DOXORUBICIN HCL [Suspect]
     Route: 042
     Dates: start: 20100517, end: 20100517
  15. ANTEBATE [Concomitant]
     Indication: RASH
     Route: 061
     Dates: start: 20090622, end: 20090901
  16. DOXORUBICIN HCL [Suspect]
     Dosage: CYCLE 5
     Route: 042
     Dates: start: 20090915, end: 20090915
  17. DOXORUBICIN HCL [Suspect]
     Route: 042
     Dates: start: 20091215, end: 20091215
  18. SODIUM BICARBONATE [Concomitant]
     Indication: STOMATITIS
     Route: 049
     Dates: start: 20090622, end: 20090721
  19. MAGMITT [Concomitant]
     Indication: CONSTIPATION
     Route: 048
  20. DOXORUBICIN HCL [Suspect]
     Dosage: CYCLE 1
     Route: 042
     Dates: start: 20090512, end: 20090512
  21. RIZABEN [Concomitant]
     Indication: SEASONAL ALLERGY
     Route: 031
     Dates: start: 20090917

REACTIONS (5)
  - INFUSION RELATED REACTION [None]
  - PALMAR-PLANTAR ERYTHRODYSAESTHESIA SYNDROME [None]
  - INTERSTITIAL LUNG DISEASE [None]
  - STOMATITIS [None]
  - OVARIAN CANCER RECURRENT [None]
